FAERS Safety Report 9801167 (Version 1)
Quarter: 2014Q1

REPORT INFORMATION
  Report Type: Spontaneous
  Country: TW (occurrence: TW)
  Receive Date: 20140107
  Receipt Date: 20140107
  Transmission Date: 20141002
  Serious: Yes (Hospitalization)
  Sender: FDA-Public Use
  Company Number: TW-BAYER-2013-158856

PATIENT
  Age: 52 Year
  Sex: Male

DRUGS (2)
  1. ASPIRIN TABLETS [Suspect]
     Indication: PYREXIA
  2. ALLOPURINOL [Suspect]
     Indication: HYPERURICAEMIA

REACTIONS (1)
  - Drug reaction with eosinophilia and systemic symptoms [Recovered/Resolved]
